FAERS Safety Report 5771898-X (Version None)
Quarter: 2008Q2

REPORT INFORMATION
  Report Type: 
  Country: None (occurrence: None)
  Receive Date: 20080613
  Receipt Date: 20080612
  Transmission Date: 20081010
  Serious: Yes (Other)
  Sender: FDA-Public Use
  Company Number: B0524851A

PATIENT
  Age: 2 Year
  Sex: Male

DRUGS (3)
  1. BECLOMETHASONE DIPROPIONATE [Suspect]
     Indication: ASTHMA
     Dosage: 100MCG PER DAY
     Route: 055
     Dates: start: 20080509, end: 20080522
  2. SALBUTAMOL SULPHATE [Concomitant]
     Indication: ASTHMA
     Dosage: 100MCG AS REQUIRED
     Route: 055
  3. BECLOMETHASONE DIPROPIONATE [Concomitant]

REACTIONS (2)
  - AGITATION [None]
  - NASAL DISCOMFORT [None]
